FAERS Safety Report 5999603-2 (Version None)
Quarter: 2008Q4

REPORT INFORMATION
  Report Type: 
  Country: None (occurrence: None)
  Receive Date: 20081211
  Receipt Date: 20081211
  Transmission Date: 20090506
  Serious: No
  Sender: FDA-Public Use
  Company Number: None

PATIENT
  Sex: Male
  Weight: 83.9154 kg

DRUGS (2)
  1. ADVAIR DISKUS 250/50 [Suspect]
     Indication: CHRONIC OBSTRUCTIVE PULMONARY DISEASE
     Dosage: 250/50 TWICE A DAY
     Dates: start: 20080804
  2. ADVAIR DISKUS 250/50 [Suspect]
     Indication: CHRONIC OBSTRUCTIVE PULMONARY DISEASE
     Dosage: 250/50 TWICE A DAY
     Dates: start: 20081110

REACTIONS (7)
  - CATARACT [None]
  - CONDITION AGGRAVATED [None]
  - COUGH [None]
  - GINGIVAL DISCOLOURATION [None]
  - GLAUCOMA [None]
  - PRURITUS [None]
  - RASH [None]
